FAERS Safety Report 8624284-9 (Version None)
Quarter: 2012Q3

REPORT INFORMATION
  Report Type: 
  Country: None (occurrence: None)
  Receive Date: 20120827
  Receipt Date: 20120821
  Transmission Date: 20120928
  Serious: Yes (Life-Threatening, Other)
  Sender: FDA-Public Use
  Company Number: US-JNJFOC-20120810881

PATIENT
  Sex: Male
  Weight: 90.72 kg

DRUGS (6)
  1. REMICADE [Suspect]
     Indication: RHEUMATOID ARTHRITIS
     Route: 042
  2. DIOVAN [Concomitant]
     Indication: CARDIAC DISORDER
     Route: 065
  3. WARFARIN SODIUM [Concomitant]
     Indication: CARDIAC DISORDER
     Route: 065
  4. AVONEX [Concomitant]
     Indication: MULTIPLE SCLEROSIS
     Route: 065
     Dates: start: 19960101
  5. METOPROLOL TARTRATE [Concomitant]
     Indication: CARDIAC DISORDER
     Route: 065
  6. CRESTOR [Concomitant]
     Indication: CARDIAC DISORDER
     Route: 065

REACTIONS (3)
  - LUNG DISORDER [None]
  - DECREASED IMMUNE RESPONSIVENESS [None]
  - INFECTION [None]
